FAERS Safety Report 6073092-4 (Version None)
Quarter: 2009Q1

REPORT INFORMATION
  Report Type: 
  Country: None (occurrence: None)
  Receive Date: 20090211
  Receipt Date: 20090205
  Transmission Date: 20090719
  Serious: Yes (Other)
  Sender: FDA-Public Use
  Company Number: MX-JNJFOC-20081105580

PATIENT
  Age: 39 Year
  Sex: Female

DRUGS (3)
  1. RISPERDAL [Suspect]
     Indication: AGGRESSION
     Route: 048
  2. RISPERDAL [Suspect]
     Indication: IMPULSIVE BEHAVIOUR
     Dosage: 1MG/2MG  (THE INDICATION TO THE PATIENT WAS TO ADJUST THE DOSE ACCORDING TO SYMPTOMATOLOGY)
     Route: 048
  3. STEROIDS [Concomitant]
     Indication: NEPHROTIC SYNDROME
     Route: 065

REACTIONS (2)
  - EMPTY SELLA SYNDROME [None]
  - PITUITARY TUMOUR BENIGN [None]
